FAERS Safety Report 7677588-0 (Version None)
Quarter: 2011Q3

REPORT INFORMATION
  Report Type: 
  Country: None (occurrence: None)
  Receive Date: 20110811
  Receipt Date: 20110811
  Transmission Date: 20111222
  Serious: Yes (Other)
  Sender: FDA-Public Use
  Company Number: None

PATIENT
  Age: 27 Year
  Sex: Female
  Weight: 80.739 kg

DRUGS (1)
  1. CHANTIX [Suspect]
     Indication: SMOKING CESSATION THERAPY
     Dosage: 1 MG
     Route: 048
     Dates: start: 20110627, end: 20110708

REACTIONS (8)
  - SENSATION OF FOREIGN BODY [None]
  - PICA [None]
  - ABDOMINAL PAIN UPPER [None]
  - APHAGIA [None]
  - DEHYDRATION [None]
  - AMNESIA [None]
  - PAIN [None]
  - FLUID INTAKE REDUCED [None]
